FAERS Safety Report 15488141 (Version 1)
Quarter: 2018Q4

REPORT INFORMATION
  Report Type: Spontaneous
  Country: JP (occurrence: JP)
  Receive Date: 20181011
  Receipt Date: 20181011
  Transmission Date: 20190205
  Serious: Yes (Hospitalization)
  Sender: FDA-Public Use
  Company Number: JP-MYLANLABS-2018M1074884

PATIENT
  Age: 87 Year
  Sex: Male

DRUGS (5)
  1. GALANTAMINE. [Suspect]
     Active Substance: GALANTAMINE
     Dosage: AFTER 6 MONTHS
     Route: 048
  2. GALANTAMINE. [Suspect]
     Active Substance: GALANTAMINE
     Dosage: A 12-MG TABLET TWICE A DAY AT 0800 HOURS AND 2000 HOURS; ANOTHER 6 MONTHS LATER
     Route: 048
  3. GALANTAMINE. [Suspect]
     Active Substance: GALANTAMINE
     Indication: DEMENTIA ALZHEIMER^S TYPE
     Route: 048
  4. PRAVASTATIN SODIUM. [Concomitant]
     Active Substance: PRAVASTATIN SODIUM
     Indication: HYPERLIPIDAEMIA
     Route: 065
  5. AMBROXOL HYDROCHLORIDE [Concomitant]
     Active Substance: AMBROXOL HYDROCHLORIDE
     Indication: BRONCHITIS CHRONIC
     Route: 065

REACTIONS (1)
  - Cholinergic syndrome [Recovered/Resolved]
